FAERS Safety Report 8872000 (Version 1)
Quarter: 2012Q4

REPORT INFORMATION
  Report Type: 
  Country: US (occurrence: US)
  Receive Date: 20121023
  Receipt Date: 20121023
  Transmission Date: 20130627
  Serious: Yes (Other)
  Sender: FDA-Public Use
  Company Number: US-ASTELLAS-2012US006040

PATIENT
  Age: 77 Year
  Sex: Female

DRUGS (5)
  1. PROGRAF [Suspect]
     Indication: RENAL TRANSPLANT
     Dosage: 1 mg am, 2 mg pm
     Route: 048
     Dates: start: 1995
  2. LIPITOR [Concomitant]
     Indication: BLOOD CHOLESTEROL INCREASED
     Dosage: 20 mg, Q5W
     Route: 048
     Dates: start: 1995
  3. LABETALOL [Concomitant]
     Indication: HYPERTENSION
     Dosage: 400 mg, UID/QD
     Route: 065
     Dates: start: 1995
  4. NEXIUM                             /01479302/ [Concomitant]
     Indication: DYSPEPSIA
     Dosage: 40 mg, Unknown/D
     Route: 065
  5. SULFAMETHOXAZOLE AND TRIMETHOPRIM [Concomitant]
     Indication: INFECTION PROPHYLAXIS
     Dosage: 400-80 UNK, Unknown/D
     Route: 065
     Dates: start: 1995

REACTIONS (1)
  - Gastroenteritis viral [Recovering/Resolving]
